FAERS Safety Report 10569711 (Version 1)
Quarter: 2014Q4

REPORT INFORMATION
  Report Type: Report from Study
  Country: US (occurrence: CH)
  Receive Date: 20141107
  Receipt Date: 20141107
  Transmission Date: 20150529
  Serious: No
  Sender: FDA-Public Use
  Company Number: CH-FRI-1000072044

PATIENT
  Age: 55 Year
  Sex: Female
  Weight: 70 kg

DRUGS (5)
  1. ASENAPINE [Suspect]
     Active Substance: ASENAPINE
     Dosage: 15 MG
     Route: 060
     Dates: start: 20140124
  2. SURMONTIL [Concomitant]
     Active Substance: TRIMIPRAMINE MALEATE
     Indication: DEPRESSION
     Dosage: 25 MG
     Dates: start: 20131223
  3. ASENAPINE [Suspect]
     Active Substance: ASENAPINE
     Dosage: 20 MG
     Route: 060
     Dates: start: 20140203
  4. VENLAFAXINE HYDROCHLORIDE. [Concomitant]
     Active Substance: VENLAFAXINE HYDROCHLORIDE
     Indication: DEPRESSION
     Dosage: 150 MG
     Dates: start: 20131223
  5. ASENAPINE [Suspect]
     Active Substance: ASENAPINE
     Indication: BIPOLAR I DISORDER
     Dosage: 10 MG
     Route: 060
     Dates: start: 20140120

REACTIONS (4)
  - Somnolence [Recovered/Resolved]
  - Dysgeusia [Recovered/Resolved]
  - Swollen tongue [Recovered/Resolved]
  - Dizziness [Recovered/Resolved]

NARRATIVE: CASE EVENT DATE: 20140123
